FAERS Safety Report 14554113 (Version 1)
Quarter: 2018Q1

REPORT INFORMATION
  Report Type: Report from Study
  Country: ES (occurrence: ES)
  Receive Date: 20180220
  Receipt Date: 20180220
  Transmission Date: 20180509
  Serious: Yes (Death, Hospitalization)
  Sender: FDA-Public Use
  Company Number: ES-TEVA-2018-ES-856876

PATIENT
  Age: 79 Year
  Sex: Male

DRUGS (7)
  1. SEGURIL 40 MG COMPRIMIDOS [Concomitant]
     Active Substance: FUROSEMIDE
     Indication: HYPERTENSION
     Route: 048
     Dates: start: 2017
  2. VELMETIA 50 MG/1000 MG COMPRIMIDOS RECUBIERTOS CON PELICULA [Concomitant]
     Active Substance: METFORMIN\SITAGLIPTIN
     Indication: DIABETES MELLITUS
     Dosage: 1-0-1
     Route: 048
     Dates: start: 2017
  3. CARDYL 10 MG COMPRIMIDOS RECUBIERTOS CON PELICULA [Concomitant]
     Indication: HYPERLIPIDAEMIA
     Route: 048
     Dates: start: 2017
  4. OMEPRAZOLE. [Suspect]
     Active Substance: OMEPRAZOLE
     Indication: PROPHYLAXIS
     Route: 048
     Dates: start: 2017
  5. SINTROM [Interacting]
     Active Substance: ACENOCOUMAROL
     Indication: ATRIAL FIBRILLATION
     Dosage: UPON INR
     Route: 048
     Dates: start: 2017
  6. DIGOXINA 0,25 MG COMPRIMIDO [Concomitant]
     Active Substance: DIGOXIN
     Indication: ARRHYTHMIA
     Route: 048
     Dates: start: 2017
  7. AMLODIPINO 10 MG COMPRIMIDO [Concomitant]
     Active Substance: AMLODIPINE BESYLATE
     Indication: PRODUCT USED FOR UNKNOWN INDICATION
     Dosage: 1-0-0
     Route: 048
     Dates: start: 2017

REACTIONS (3)
  - Intraventricular haemorrhage [Fatal]
  - Drug interaction [Fatal]
  - Posthaemorrhagic hydrocephalus [Fatal]

NARRATIVE: CASE EVENT DATE: 20170203
